FAERS Safety Report 5956294-4 (Version None)
Quarter: 2008Q4

REPORT INFORMATION
  Report Type: 
  Country: None (occurrence: None)
  Receive Date: 20081118
  Receipt Date: 20081107
  Transmission Date: 20090506
  Serious: Yes (Other)
  Sender: FDA-Public Use
  Company Number: US-ROCHE-592824

PATIENT
  Sex: Female
  Weight: 53.5 kg

DRUGS (4)
  1. CAPECITABINE [Suspect]
     Indication: BREAST CANCER
     Dosage: DOSING AMOUNT: 2500 OR 3000 MG FREQUENCY: 2 WEEKS OR 14 DAY CYCLE
     Route: 048
     Dates: start: 20080807, end: 20080930
  2. PRILOSEC [Concomitant]
     Route: 048
  3. BENICAL [Concomitant]
     Indication: HYPERTENSION
     Route: 048
  4. GABAPENTIN [Concomitant]
     Dosage: DOSING AMOUNT: 300 (UNITS NOT GIVEN)
     Route: 048

REACTIONS (2)
  - DISEASE PROGRESSION [None]
  - PALMAR-PLANTAR ERYTHRODYSAESTHESIA SYNDROME [None]
